FAERS Safety Report 7905704-1 (Version None)
Quarter: 2011Q4

REPORT INFORMATION
  Report Type: 
  Country: None (occurrence: None)
  Receive Date: 20111108
  Receipt Date: 20111026
  Transmission Date: 20120403
  Serious: Yes (Other)
  Sender: FDA-Public Use
  Company Number: 2011MA014118

PATIENT
  Age: 43 Year
  Sex: Male

DRUGS (3)
  1. FEVERALL [Suspect]
     Indication: JOINT INJURY
     Dosage: 500 MG;PO
     Route: 048
     Dates: start: 20110901, end: 20110908
  2. VARENICLINE TARTRATE [Suspect]
     Dosage: 1 MG;BID;PO
     Route: 048
     Dates: start: 20110622, end: 20110907
  3. TRAMADOL HCL [Concomitant]

REACTIONS (1)
  - HAEMATURIA [None]
